FAERS Safety Report 6402167-2 (Version None)
Quarter: 2009Q4

REPORT INFORMATION
  Report Type: 
  Country: None (occurrence: None)
  Receive Date: 20091015
  Receipt Date: 20091005
  Transmission Date: 20100525
  Serious: Yes (Other)
  Sender: FDA-Public Use
  Company Number: BR-ABBOTT-09P-020-0596121-00

PATIENT
  Sex: Male
  Weight: 100 kg

DRUGS (11)
  1. HUMIRA [Suspect]
     Indication: RHEUMATOID ARTHRITIS
     Route: 058
     Dates: start: 20060101, end: 20090501
  2. METHOTREXATE [Concomitant]
     Indication: RHEUMATOID ARTHRITIS
     Route: 048
  3. FOLIC ACID [Concomitant]
     Indication: RHEUMATOID ARTHRITIS
     Route: 048
  4. PREDNISONE [Concomitant]
     Indication: RHEUMATOID ARTHRITIS
     Dosage: 1.5 TABLETS IN 24 HOURS
     Route: 048
  5. SINERGEN [Concomitant]
     Indication: HYPERTENSION
     Route: 048
  6. SULFASALAZINE [Concomitant]
     Indication: RHEUMATOID ARTHRITIS
     Route: 048
  7. SULFASALAZINE [Concomitant]
     Indication: OSTEOARTHRITIS
  8. CAPTOPRIL [Concomitant]
     Indication: HYPERTENSION
     Route: 048
  9. CAPTOPRIL [Concomitant]
  10. PARACETAMOL+CODEIN [Concomitant]
     Indication: PAIN
     Route: 048
  11. CLONAZEPAM [Concomitant]
     Indication: SLEEP DISORDER THERAPY
     Route: 048

REACTIONS (13)
  - ABDOMINAL PAIN UPPER [None]
  - ARTHRALGIA [None]
  - BACTERAEMIA [None]
  - DIARRHOEA [None]
  - DRUG INEFFECTIVE [None]
  - DYSSTASIA [None]
  - FEELING ABNORMAL [None]
  - GASTROINTESTINAL DISORDER [None]
  - ILL-DEFINED DISORDER [None]
  - INTERVERTEBRAL DISC COMPRESSION [None]
  - PRURITUS [None]
  - PYREXIA [None]
  - SWELLING [None]
